FAERS Safety Report 8016896-0 (Version None)
Quarter: 2012Q1

REPORT INFORMATION
  Report Type: 
  Country: None (occurrence: None)
  Receive Date: 20120102
  Receipt Date: 20111221
  Transmission Date: 20120608
  Serious: Yes (Other)
  Sender: FDA-Public Use
  Company Number: PHEH2011US07729

PATIENT
  Sex: Male
  Weight: 84.853 kg

DRUGS (17)
  1. AFINITOR [Suspect]
     Indication: NEUROENDOCRINE CARCINOMA
     Dosage: 10 MG, QD
     Route: 065
     Dates: start: 20110705
  2. LOMOTIL [Concomitant]
     Dosage: UNK
     Route: 048
  3. OXYCODONE HYDROCHLORIDE [Concomitant]
     Dosage: 40 MG, UNK
     Route: 048
  4. CALCIUM ACETATE [Concomitant]
     Dosage: UNK MG, UNK
     Route: 048
  5. HYDROCODONE BITARTRATE [Concomitant]
     Indication: PAIN
     Dosage: 1 TAB
     Route: 048
  6. PAIN KILLERS [Concomitant]
     Dosage: UNK UKN, UNK
     Route: 065
  7. ATIVAN [Concomitant]
     Indication: NAUSEA
     Dosage: 0.5 MG, Q4H
     Route: 065
  8. NEURONTIN [Concomitant]
     Dosage: 300 MG, TID
     Route: 048
  9. ZOFRAN [Concomitant]
     Dosage: 8 MG, UNK
     Route: 048
  10. OMEPRAZOLE [Concomitant]
     Dosage: 20 MG, BID
     Route: 048
  11. LACTULOSE [Concomitant]
     Dosage: 15 ML, UNK
     Route: 048
  12. NAPRELAN [Concomitant]
     Dosage: 500 MG, BID
     Route: 048
  13. NUPERCAINAL OINTMENT [Concomitant]
     Route: 061
  14. TEMODAR [Concomitant]
     Dosage: UNK UKN, UNK
     Route: 065
  15. DEXAMETHASONE [Concomitant]
     Dosage: 1.5 TAB
     Route: 048
  16. XELODA [Concomitant]
  17. PROCHLORPERAZINE MALEATE [Concomitant]
     Dosage: 40 MG, UNK
     Route: 048

REACTIONS (6)
  - PELVIC MASS [None]
  - NEOPLASM PROGRESSION [None]
  - INTESTINAL MASS [None]
  - CONSTIPATION [None]
  - METASTASES TO BONE [None]
  - NEOPLASM MALIGNANT [None]
